FAERS Safety Report 12689552 (Version 1)
Quarter: 2016Q3

REPORT INFORMATION
  Report Type: Spontaneous
  Country: US (occurrence: US)
  Receive Date: 20160826
  Receipt Date: 20160826
  Transmission Date: 20161109
  Serious: No
  Sender: FDA-Public Use
  Company Number: US-009507513-1608USA004158

PATIENT
  Age: 66 Year
  Sex: Female

DRUGS (1)
  1. BELSOMRA [Suspect]
     Active Substance: SUVOREXANT
     Dosage: 5 MG, ONCE NIGHTLY
     Route: 048
     Dates: start: 20160803

REACTIONS (2)
  - Middle insomnia [Unknown]
  - Insomnia [Unknown]

NARRATIVE: CASE EVENT DATE: 20160803
